FAERS Safety Report 20477440 (Version 1)
Quarter: 2022Q1

REPORT INFORMATION
  Report Type: Report from Study
  Country: US (occurrence: US)
  Receive Date: 20220215
  Receipt Date: 20220215
  Transmission Date: 20220423
  Serious: No
  Sender: FDA-Public Use
  Company Number: US-BIOVITRUM-2022US02055

PATIENT
  Sex: Female

DRUGS (1)
  1. KINERET [Suspect]
     Active Substance: ANAKINRA
     Indication: Rheumatoid arthritis
     Route: 058
     Dates: start: 20220126

REACTIONS (5)
  - Inflammation [Unknown]
  - Swelling [Unknown]
  - Tenderness [Unknown]
  - Rash pruritic [Unknown]
  - Injection site pain [Unknown]
